FAERS Safety Report 21103025 (Version 2)
Quarter: 2022Q3

REPORT INFORMATION
  Report Type: Spontaneous
  Country: FR (occurrence: FR)
  Receive Date: 20220720
  Receipt Date: 20220730
  Transmission Date: 20221027
  Serious: Yes (Death)
  Sender: FDA-Public Use
  Company Number: None

PATIENT
  Age: 35 Year
  Sex: Male

DRUGS (8)
  1. BUPRENORPHINE [Suspect]
     Active Substance: BUPRENORPHINE
     Indication: Product used for unknown indication
     Dosage: UNSPECIFIED
     Route: 065
     Dates: end: 202205
  2. DIAZEPAM [Suspect]
     Active Substance: DIAZEPAM
     Indication: Product used for unknown indication
     Dosage: UNSPECIFIED
     Route: 065
     Dates: end: 202205
  3. NORDAZEPAM [Suspect]
     Active Substance: NORDAZEPAM
     Indication: Product used for unknown indication
     Dosage: UNSPECIFIED
     Route: 065
     Dates: end: 202205
  4. BENZOYLECGONINE [Suspect]
     Active Substance: BENZOYLECGONINE
     Indication: Product used for unknown indication
     Dosage: UNSPECIFIED
     Route: 065
     Dates: end: 202205
  5. COCAETHYLENE [Suspect]
     Active Substance: COCAETHYLENE
     Indication: Product used for unknown indication
     Dosage: UNSPECIFIED
     Route: 065
     Dates: end: 202205
  6. COCAINE [Suspect]
     Active Substance: COCAINE
     Indication: Product used for unknown indication
     Dosage: UNSPECIFIED
     Route: 065
     Dates: end: 202205
  7. ALCOHOL [Suspect]
     Active Substance: ALCOHOL
     Indication: Product used for unknown indication
     Dosage: UNSPECIFIED, ALCOOL
     Route: 065
     Dates: end: 202205
  8. OXAZEPAM [Suspect]
     Active Substance: OXAZEPAM
     Indication: Product used for unknown indication
     Dosage: UNSPECIFIED
     Route: 065
     Dates: end: 202205

REACTIONS (2)
  - Drug abuse [Fatal]
  - Asphyxia [Fatal]
